FAERS Safety Report 8796028 (Version 2)
Quarter: 2014Q1

REPORT INFORMATION
  Report Type: Spontaneous
  Country: US (occurrence: US)
  Receive Date: 20120919
  Receipt Date: 20140313
  Transmission Date: 20141002
  Serious: Yes (Other)
  Sender: FDA-Public Use
  Company Number: US-ASTRAZENECA-2010SE19553

PATIENT
  Age: 65 Year
  Sex: Male

DRUGS (1)
  1. NEXIUM [Suspect]
     Route: 048

REACTIONS (4)
  - Cerebrovascular accident [Unknown]
  - Dysphagia [Unknown]
  - Sensation of foreign body [Unknown]
  - Intentional drug misuse [Unknown]
